FAERS Safety Report 13648412 (Version 1)
Quarter: 2017Q2

REPORT INFORMATION
  Report Type: Spontaneous
  Country: US (occurrence: US)
  Receive Date: 20170613
  Receipt Date: 20170613
  Transmission Date: 20170830
  Serious: Yes (Hospitalization)
  Sender: FDA-Public Use
  Company Number: US-PROCTER+GAMBLE-GS17064480

PATIENT
  Age: 57 Year
  Sex: Female

DRUGS (1)
  1. DIPHENHYDRAMINE HCL [Suspect]
     Active Substance: DIPHENHYDRAMINE HYDROCHLORIDE
     Indication: INSOMNIA
     Dosage: INGESTED TWENTY TO THIRTY, 25MG DIPHENHYDRAMINE TABLETS
     Route: 048

REACTIONS (7)
  - Depressed level of consciousness [Recovering/Resolving]
  - Overdose [Unknown]
  - Incorrect dose administered [Unknown]
  - Somnolence [Recovering/Resolving]
  - Condition aggravated [Recovering/Resolving]
  - Mental status changes [Recovering/Resolving]
  - Restless legs syndrome [Recovering/Resolving]
